FAERS Safety Report 7945725-6 (Version None)
Quarter: 2011Q4

REPORT INFORMATION
  Report Type: 
  Country: None (occurrence: None)
  Receive Date: 20111129
  Receipt Date: 20111115
  Transmission Date: 20120403
  Serious: Yes (Other)
  Sender: FDA-Public Use
  Company Number: US-ELI_LILLY_AND_COMPANY-US201109006611

PATIENT
  Age: 55 Year
  Sex: Female
  Weight: 67.664 kg

DRUGS (1)
  1. SYMBYAX [Suspect]
     Indication: MAJOR DEPRESSION
     Dosage: 12/25 MG, QD
     Route: 048
     Dates: start: 20110817, end: 20110919

REACTIONS (8)
  - ALANINE AMINOTRANSFERASE INCREASED [None]
  - BILIRUBIN CONJUGATED INCREASED [None]
  - BLOOD ALKALINE PHOSPHATASE INCREASED [None]
  - ABDOMINAL PAIN [None]
  - BLOOD BILIRUBIN INCREASED [None]
  - ASPARTATE AMINOTRANSFERASE INCREASED [None]
  - JAUNDICE [None]
  - FATIGUE [None]
